FAERS Safety Report 14819139 (Version 7)
Quarter: 2018Q2

REPORT INFORMATION
  Report Type: Spontaneous
  Country: US (occurrence: US)
  Receive Date: 20180427
  Receipt Date: 20180627
  Transmission Date: 20180711
  Serious: Yes (Other)
  Sender: FDA-Public Use
  Company Number: US-PFIZER INC-2018168422

PATIENT
  Age: 67 Year
  Sex: Female

DRUGS (3)
  1. MIRACLE MOUTH WASH [Concomitant]
     Active Substance: UNSPECIFIED INGREDIENT
     Dosage: UNK
  2. SUTENT [Suspect]
     Active Substance: SUNITINIB MALATE
     Indication: METASTATIC RENAL CELL CARCINOMA
     Dosage: 50 MG, CYCLIC (DAILY, 28 DAYS ON/14 DAYS OFF)
     Dates: start: 20180419, end: 20180509
  3. SYNTHROID [Concomitant]
     Active Substance: LEVOTHYROXINE SODIUM
     Dosage: UNK

REACTIONS (23)
  - Insomnia [Unknown]
  - Gait disturbance [Unknown]
  - Asthenia [Unknown]
  - Pain in extremity [Unknown]
  - Erythema [Not Recovered/Not Resolved]
  - Blister [Unknown]
  - Haematochezia [Unknown]
  - Feeling abnormal [Unknown]
  - Dysgeusia [Unknown]
  - Swelling face [Unknown]
  - Headache [Unknown]
  - Condition aggravated [Unknown]
  - Tremor [Unknown]
  - Hypertension [Not Recovered/Not Resolved]
  - Anxiety [Unknown]
  - Pollakiuria [Unknown]
  - Burning sensation mucosal [Unknown]
  - Rash macular [Unknown]
  - Oral pain [Unknown]
  - Feeling cold [Unknown]
  - Restlessness [Unknown]
  - Stomatitis [Not Recovered/Not Resolved]
  - Dry skin [Unknown]

NARRATIVE: CASE EVENT DATE: 2018
